FAERS Safety Report 7831072-X (Version None)
Quarter: 2011Q4

REPORT INFORMATION
  Report Type: 
  Country: None (occurrence: None)
  Receive Date: 20111021
  Receipt Date: 20111013
  Transmission Date: 20120403
  Serious: Yes (Other)
  Sender: FDA-Public Use
  Company Number: PHEH2010US03510

PATIENT
  Sex: Male

DRUGS (13)
  1. AVANDIA [Concomitant]
  2. GEMFIBROZIL [Concomitant]
  3. METOPROLOL TARTRATE [Concomitant]
  4. METFORMIN HCL [Concomitant]
  5. ACCURETIC [Concomitant]
  6. WARFARIN SODIUM [Concomitant]
  7. NIASPAN [Concomitant]
  8. GLYBURIDE [Concomitant]
  9. MECLIZINE [Concomitant]
  10. LANTUS [Concomitant]
  11. OMEPRAZOLE [Concomitant]
  12. AMITRIPTYLINE HCL [Concomitant]
  13. ZOMETA [Suspect]

REACTIONS (15)
  - DEFORMITY [None]
  - NEOPLASM MALIGNANT [None]
  - OVERDOSE [None]
  - SLEEP APNOEA SYNDROME [None]
  - OSTEONECROSIS OF JAW [None]
  - PAIN [None]
  - INFECTION [None]
  - ARTHRALGIA [None]
  - INTERVERTEBRAL DISC DEGENERATION [None]
  - RADICULOPATHY [None]
  - PALPITATIONS [None]
  - PARTNER STRESS [None]
  - ANAEMIA [None]
  - NEUROPATHY PERIPHERAL [None]
  - HEART RATE IRREGULAR [None]
